FAERS Safety Report 6335754-0 (Version None)
Quarter: 2009Q3

REPORT INFORMATION
  Report Type: 
  Country: None (occurrence: None)
  Receive Date: 20090831
  Receipt Date: 20090821
  Transmission Date: 20100115
  Serious: Yes (Hospitalization)
  Sender: FDA-Public Use
  Company Number: BE-ABBOTT-09P-013-0592486-00

PATIENT
  Age: 58 Year
  Sex: Male

DRUGS (1)
  1. HUMIRA [Suspect]
     Indication: COLITIS ULCERATIVE
     Dosage: WEEK 0:160MG,WEEK 2:80MG,WEEK 4:40MG, ONGOING: 40MG EOW
     Route: 058
     Dates: start: 20090619, end: 20090817

REACTIONS (2)
  - PYREXIA [None]
  - RENAL FAILURE ACUTE [None]
